FAERS Safety Report 8397260-1 (Version None)
Quarter: 2012Q2

REPORT INFORMATION
  Report Type: 
  Country: None (occurrence: None)
  Receive Date: 20120531
  Receipt Date: 20120530
  Transmission Date: 20120825
  Serious: Yes (Hospitalization, Other)
  Sender: FDA-Public Use
  Company Number: US-AMGEN-USASP2012030278

PATIENT
  Age: 60 Year
  Sex: Female

DRUGS (1)
  1. ENBREL [Suspect]
     Indication: RHEUMATOID ARTHRITIS
     Dosage: 25 MG, 2 TIMES/WK
     Dates: start: 19981201

REACTIONS (14)
  - PERICARDIAL EFFUSION [None]
  - KNEE ARTHROPLASTY [None]
  - RHEUMATOID ARTHRITIS [None]
  - OCULAR HYPERAEMIA [None]
  - LACRIMATION INCREASED [None]
  - JOINT DESTRUCTION [None]
  - INFLAMMATION [None]
  - CONNECTIVE TISSUE DISORDER [None]
  - DYSPHAGIA [None]
  - HEART RATE IRREGULAR [None]
  - EYE PAIN [None]
  - SUPERFICIAL INJURY OF EYE [None]
  - OSTEOARTHRITIS [None]
  - CARDIAC DISORDER [None]
